FAERS Safety Report 9152234 (Version 2)
Quarter: 2013Q2

REPORT INFORMATION
  Report Type: Spontaneous
  Country: US (occurrence: US)
  Receive Date: 20130308
  Receipt Date: 20130610
  Transmission Date: 20140414
  Serious: Yes (Other)
  Sender: FDA-Public Use
  Company Number: US-ASTELLAS-2013US000497

PATIENT
  Age: 69 Year
  Sex: Male
  Weight: 108 kg

DRUGS (14)
  1. XTANDI [Suspect]
     Indication: PROSTATE CANCER METASTATIC
     Dosage: 160 MG, UID/QD
     Route: 048
     Dates: start: 20121229, end: 20130118
  2. XTANDI [Interacting]
     Dosage: 160 MG, UID/QD
     Route: 048
     Dates: start: 20130125, end: 20130128
  3. FENTANYL [Interacting]
     Indication: PAIN
     Dosage: 300 UG, EVERY 48 HOURS
     Route: 065
     Dates: start: 20130108
  4. DIOVAN [Concomitant]
     Indication: PRODUCT USED FOR UNKNOWN INDICATION
     Dosage: 1 DF, UID/QD
     Route: 048
  5. AMLODIPINE BESYLATE [Concomitant]
     Indication: PRODUCT USED FOR UNKNOWN INDICATION
     Dosage: 5 MG, UID/QD
     Route: 048
     Dates: start: 20111214
  6. OXYCONTIN [Concomitant]
     Indication: PRODUCT USED FOR UNKNOWN INDICATION
     Dosage: 1 DF, BID
     Route: 065
     Dates: start: 20111214
  7. ALPRAZOLAM [Concomitant]
     Indication: PRODUCT USED FOR UNKNOWN INDICATION
     Dosage: 0.5 DF, PRN
     Route: 065
     Dates: start: 20120606
  8. ASPIRIN [Concomitant]
     Indication: PRODUCT USED FOR UNKNOWN INDICATION
     Dosage: 1 DF, UID/QD
     Route: 048
     Dates: start: 20121211
  9. AKTEN [Concomitant]
     Indication: PRODUCT USED FOR UNKNOWN INDICATION
     Dosage: UNK
     Route: 065
     Dates: start: 20111214
  10. LUPRON DEPOT [Concomitant]
     Indication: PRODUCT USED FOR UNKNOWN INDICATION
     Dosage: UNK
     Route: 065
     Dates: start: 20111017
  11. XGEVA [Concomitant]
     Indication: PRODUCT USED FOR UNKNOWN INDICATION
     Dosage: UNK
     Route: 058
     Dates: start: 20120406
  12. PERCOCET                           /00867901/ [Concomitant]
     Indication: PRODUCT USED FOR UNKNOWN INDICATION
     Dosage: UNK
     Route: 048
     Dates: start: 20120406
  13. LOTRIMIN ULTRA [Concomitant]
     Indication: PRODUCT USED FOR UNKNOWN INDICATION
     Dosage: 2-3 TIMES DAILY
     Route: 061
     Dates: start: 20121109
  14. LASIX                              /00032601/ [Concomitant]
     Indication: OEDEMA PERIPHERAL
     Dosage: UNK
     Route: 065

REACTIONS (28)
  - Haematuria [Recovered/Resolved]
  - Platelet count decreased [Recovered/Resolved]
  - Muscle twitching [Recovered/Resolved]
  - Affective disorder [Recovered/Resolved]
  - Unevaluable event [Recovered/Resolved]
  - Retching [Recovered/Resolved]
  - Decreased appetite [Recovering/Resolving]
  - Gait disturbance [Unknown]
  - Depression [Recovered/Resolved]
  - Dyspnoea [Unknown]
  - Nausea [Recovered/Resolved]
  - Cognitive disorder [Recovered/Resolved]
  - Asthenia [Recovering/Resolving]
  - Fatigue [Recovering/Resolving]
  - Arthralgia [Recovering/Resolving]
  - Back pain [Recovering/Resolving]
  - Insomnia [Recovered/Resolved]
  - Paraesthesia [Recovered/Resolved]
  - Myalgia [Unknown]
  - Pain [Unknown]
  - Disturbance in attention [Recovered/Resolved]
  - Hot flush [Recovered/Resolved]
  - Drug interaction [Unknown]
  - Anxiety [Recovering/Resolving]
  - Prostatic specific antigen increased [Unknown]
  - Dry skin [Recovering/Resolving]
  - Anaemia [Unknown]
  - Local swelling [Unknown]
